FAERS Safety Report 23883585 (Version 1)
Quarter: 2024Q2

REPORT INFORMATION
  Report Type: Spontaneous
  Country: US (occurrence: None)
  Receive Date: 20240521
  Receipt Date: 20240521
  Transmission Date: 20240716
  Serious: Yes (Hospitalization)
  Sender: FDA-Public Use
  Company Number: None

PATIENT
  Sex: Male

DRUGS (3)
  1. AUSTEDO XR [Suspect]
     Active Substance: DEUTETRABENAZINE
     Indication: Tremor
     Dosage: FREQUENCY-WEEK1:TAKE 12MGBY MOUTH 1 TIME A DAY. WEEK 2: TAKE 18MG BY MOUTH 1 TIME A DAY. WEEK  3: T
     Route: 048
     Dates: start: 202405
  2. AUSTEDO XR PATIENT TITRAT [Concomitant]
  3. INGREZZA [Concomitant]
     Active Substance: VALBENAZINE

REACTIONS (1)
  - Urinary tract infection [None]
